FAERS Safety Report 10756194 (Version 4)
Quarter: 2017Q2

REPORT INFORMATION
  Report Type: Spontaneous
  Country: US (occurrence: US)
  Receive Date: 20150202
  Receipt Date: 20170424
  Transmission Date: 20170829
  Serious: Yes (Hospitalization, Other)
  Sender: FDA-Public Use
  Company Number: US-PFIZER INC-2015043394

PATIENT
  Age: 33 Year
  Sex: Female

DRUGS (2)
  1. SUTENT [Suspect]
     Active Substance: SUNITINIB MALATE
     Indication: GASTROINTESTINAL STROMAL TUMOUR
     Dosage: 50 MG, CYCLIC (DAILY FOR 2 WEEKS AND 1 WEEK OFF)
     Route: 048
     Dates: start: 20150101
  2. SUTENT [Suspect]
     Active Substance: SUNITINIB MALATE
     Dosage: 37.5 MG, CYCLIC (DAILY FOR 2 WEEKS AND 1 WEEK OFF)
     Route: 048

REACTIONS (16)
  - Nausea [Unknown]
  - Palmar-plantar erythrodysaesthesia syndrome [Unknown]
  - Dysgeusia [Unknown]
  - Drug hypersensitivity [Unknown]
  - Skin discolouration [Unknown]
  - Hair colour changes [Unknown]
  - Rash [Unknown]
  - Pyrexia [Unknown]
  - Stomatitis [Unknown]
  - Dry skin [Unknown]
  - Viral upper respiratory tract infection [Unknown]
  - Oedema peripheral [Unknown]
  - Erythema [Unknown]
  - Hyperthyroidism [Unknown]
  - Pericardial effusion [Unknown]
  - Diarrhoea [Unknown]

NARRATIVE: CASE EVENT DATE: 201501
